FAERS Safety Report 6713400-1 (Version None)
Quarter: 2010Q2

REPORT INFORMATION
  Report Type: 
  Country: None (occurrence: None)
  Receive Date: 20100503
  Receipt Date: 20091118
  Transmission Date: 20101027
  Serious: No
  Sender: FDA-Public Use
  Company Number: 2009-00742

PATIENT
  Age: 86 Year
  Sex: Female
  Weight: 77.1115 kg

DRUGS (2)
  1. ADULT NASAL GEL SWAB [Suspect]
     Dosage: SPORADIC FOR YEARS YEARS AGO-JUN 2009
     Dates: end: 20090620
  2. ACTACAND [Concomitant]

REACTIONS (1)
  - ANOSMIA [None]
